FAERS Safety Report 22398412 (Version 1)
Quarter: 2023Q2

REPORT INFORMATION
  Report Type: Spontaneous
  Country: RU (occurrence: None)
  Receive Date: 20230602
  Receipt Date: 20230602
  Transmission Date: 20230722
  Serious: Yes (Other)
  Sender: FDA-Public Use
  Company Number: RU-ROCHE-3359334

PATIENT
  Age: 78 Year
  Sex: Male
  Weight: 66 kg

DRUGS (2)
  1. TECENTRIQ [Suspect]
     Active Substance: ATEZOLIZUMAB
     Indication: Hepatocellular carcinoma
     Route: 041
     Dates: start: 202101
  2. BEVACIZUMAB [Suspect]
     Active Substance: BEVACIZUMAB
     Indication: Hepatocellular carcinoma
     Route: 042
     Dates: start: 202101

REACTIONS (4)
  - Aortic arteriosclerosis [Unknown]
  - Arteriosclerosis coronary artery [Unknown]
  - Osteodystrophy [Unknown]
  - Renal cyst [Unknown]
